FAERS Safety Report 16254133 (Version 2)
Quarter: 2019Q2

REPORT INFORMATION
  Report Type: Spontaneous
  Country: US (occurrence: US)
  Receive Date: 20190430
  Receipt Date: 20190513
  Transmission Date: 20190711
  Serious: No
  Sender: FDA-Public Use
  Company Number: US-009507513-1904USA009350

PATIENT
  Sex: Female

DRUGS (1)
  1. SINEMET [Suspect]
     Active Substance: CARBIDOPA\LEVODOPA
     Dosage: UNK
     Route: 048
     Dates: start: 201812

REACTIONS (5)
  - Sluggishness [Unknown]
  - Tremor [Unknown]
  - Speech disorder [Unknown]
  - Product availability issue [Unknown]
  - Gait disturbance [Unknown]
